FAERS Safety Report 23499646 (Version 4)
Quarter: 2024Q4

REPORT INFORMATION
  Report Type: Report from Study
  Country: GB (occurrence: GB)
  Receive Date: 20240208
  Receipt Date: 20241230
  Transmission Date: 20250114
  Serious: Yes (Hospitalization)
  Sender: ROCHE
  Company Number: GB-ROCHE-3505725

PATIENT
  Sex: Female

DRUGS (2)
  1. RISDIPLAM [Suspect]
     Active Substance: RISDIPLAM
     Indication: Product used for unknown indication
     Route: 048
  2. RISDIPLAM [Suspect]
     Active Substance: RISDIPLAM
     Route: 065
     Dates: start: 202403

REACTIONS (2)
  - Weight increased [Unknown]
  - Weight decreased [Unknown]
